FAERS Safety Report 20929537 (Version 3)
Quarter: 2022Q3

REPORT INFORMATION
  Report Type: Spontaneous
  Country: PL (occurrence: PL)
  Receive Date: 20220608
  Receipt Date: 20220902
  Transmission Date: 20221026
  Serious: Yes (Death, Other)
  Sender: FDA-Public Use
  Company Number: PL-ABBVIE-22K-129-4424781-00

PATIENT
  Age: 70 Year
  Sex: Female
  Weight: 55 kg

DRUGS (7)
  1. VENETOCLAX [Suspect]
     Active Substance: VENETOCLAX
     Indication: Chronic lymphocytic leukaemia
     Route: 048
     Dates: start: 20220502, end: 20220502
  2. ATORVASTATIN [Concomitant]
     Active Substance: ATORVASTATIN
     Indication: Hypercholesterolaemia
     Route: 048
     Dates: start: 20220428, end: 20220502
  3. AMLODIPINE [Concomitant]
     Active Substance: AMLODIPINE BESYLATE
     Indication: Hypertension
     Route: 048
     Dates: start: 20220425, end: 20220502
  4. HYDROXYZINE [Concomitant]
     Active Substance: HYDROXYZINE HYDROCHLORIDE
     Indication: Anxiolytic therapy
     Route: 048
     Dates: start: 20220425, end: 20220502
  5. RAMIPRIL [Concomitant]
     Active Substance: RAMIPRIL
     Indication: Hypertension
     Route: 048
     Dates: start: 20220426, end: 20220502
  6. ALLOPURINOL [Concomitant]
     Active Substance: ALLOPURINOL
     Indication: Prophylaxis
     Route: 048
     Dates: start: 20220425, end: 20220429
  7. ALLOPURINOL [Concomitant]
     Active Substance: ALLOPURINOL
     Route: 048
     Dates: start: 20220430, end: 20220502

REACTIONS (10)
  - Cardiac arrest [Fatal]
  - Tumour lysis syndrome [Fatal]
  - Hyperkalaemia [Fatal]
  - Renal failure [Unknown]
  - Arrhythmia [Not Recovered/Not Resolved]
  - Asthenia [Unknown]
  - Vomiting [Unknown]
  - Splenomegaly [Unknown]
  - Hyperphosphataemia [Recovered/Resolved]
  - Lymphadenopathy [Unknown]

NARRATIVE: CASE EVENT DATE: 20220501
